FAERS Safety Report 7649581 (Version 2)
Quarter: 2014Q1

REPORT INFORMATION
  Report Type: Report from Study
  Country: CA (occurrence: CA)
  Receive Date: 20101029
  Receipt Date: 20140228
  Transmission Date: 20141002
  Serious: Yes (Other)
  Sender: FDA-Public Use
  Company Number: PHHY2010CA47577

PATIENT
  Sex: Female

DRUGS (7)
  1. SANDOSTATIN LAR [Suspect]
     Indication: NEUROENDOCRINE CARCINOMA
     Dosage: 20 MG, QMO
     Route: 030
     Dates: start: 20090331
  2. SANDOSTATIN LAR [Suspect]
     Dosage: 30 MG, QMO
     Route: 030
  3. CALCIUM [Concomitant]
     Dosage: UNK UKN, UNK
  4. VITAMIN D [Concomitant]
     Dosage: UNK UKN, UNK
  5. IRON [Concomitant]
     Dosage: UNK UKN, UNK
  6. RADIOTHERAPY [Concomitant]
     Dosage: UNK UKN, UNK
     Dates: end: 201004
  7. CHEMOTHERAPEUTICS NOS [Concomitant]
     Dosage: UNK UKN, UNK
     Dates: end: 201004

REACTIONS (4)
  - Gingival bleeding [Unknown]
  - Diarrhoea [Unknown]
  - Abdominal discomfort [Unknown]
  - Fatigue [Recovering/Resolving]
